FAERS Safety Report 7769545-0 (Version None)
Quarter: 2011Q3

REPORT INFORMATION
  Report Type: 
  Country: None (occurrence: None)
  Receive Date: 20110922
  Receipt Date: 20110325
  Transmission Date: 20111222
  Serious: No
  Sender: FDA-Public Use
  Company Number: US-ASTRAZENECA-2011SE17270

PATIENT
  Sex: Female

DRUGS (1)
  1. SEROQUEL [Suspect]
     Dosage: TOTAL DAILY DOSE: 100 MG BID
     Route: 048

REACTIONS (4)
  - MEMORY IMPAIRMENT [None]
  - ANXIETY [None]
  - DEPRESSION [None]
  - DRUG DOSE OMISSION [None]
